FAERS Safety Report 6166233-1 (Version None)
Quarter: 2009Q2

REPORT INFORMATION
  Report Type: 
  Country: None (occurrence: None)
  Receive Date: 20090424
  Receipt Date: 20090415
  Transmission Date: 20091009
  Serious: Yes (Hospitalization, Other)
  Sender: FDA-Public Use
  Company Number: PHHY2009AU12078

PATIENT
  Age: 58 Year
  Sex: Female

DRUGS (3)
  1. CLOZAPINE [Suspect]
     Indication: SCHIZOAFFECTIVE DISORDER
     Dosage: 150 MG DAILY
  2. VALPROATE SODIUM [Concomitant]
     Indication: SCHIZOAFFECTIVE DISORDER
     Dosage: 1500 MG, BID
  3. LORAZEPAM [Concomitant]
     Route: 030

REACTIONS (20)
  - ABNORMAL BEHAVIOUR [None]
  - AGITATION [None]
  - BEDRIDDEN [None]
  - BLOOD PRESSURE FLUCTUATION [None]
  - CATATONIA [None]
  - DIARRHOEA [None]
  - EATING DISORDER [None]
  - ELECTROCONVULSIVE THERAPY [None]
  - EXCESSIVE EYE BLINKING [None]
  - FAECAL INCONTINENCE [None]
  - HYPERHIDROSIS [None]
  - LOSS OF CONSCIOUSNESS [None]
  - MUTISM [None]
  - MYOCLONUS [None]
  - POSTURING [None]
  - PYREXIA [None]
  - STEREOTYPY [None]
  - STUPOR [None]
  - TREATMENT NONCOMPLIANCE [None]
  - URINARY INCONTINENCE [None]
